FAERS Safety Report 21300210 (Version 1)
Quarter: 2022Q3

REPORT INFORMATION
  Report Type: Spontaneous
  Country: US (occurrence: None)
  Receive Date: 20220906
  Receipt Date: 20220906
  Transmission Date: 20221027
  Serious: No
  Sender: FDA-Public Use
  Company Number: None

PATIENT
  Age: 65 Year
  Sex: Female

DRUGS (1)
  1. SKYRIZI [Suspect]
     Active Substance: RISANKIZUMAB-RZAA
     Indication: Psoriasis
     Dosage: OTHER FREQUENCY : WEEK0 AND WEEK 4;?1 INJECT 150MG SUBCUTANEOUSLY AT WEEK O AND WEEK 4 AS?DIRECTED.?
     Route: 058
     Dates: start: 202112

REACTIONS (2)
  - Therapy non-responder [None]
  - COVID-19 [None]
